FAERS Safety Report 14233825 (Version 3)
Quarter: 2017Q4

REPORT INFORMATION
  Report Type: Report from Study
  Country: US (occurrence: US)
  Receive Date: 20171129
  Receipt Date: 20171219
  Transmission Date: 20180321
  Serious: Yes (Hospitalization, Other)
  Sender: FDA-Public Use
  Company Number: US-GILEAD-2017-0307392

PATIENT
  Age: 53 Year
  Sex: Male

DRUGS (2)
  1. SILDENAFIL CITRATE. [Concomitant]
     Active Substance: SILDENAFIL CITRATE
  2. AMBRISENTAN [Suspect]
     Active Substance: AMBRISENTAN
     Indication: PRODUCT USED FOR UNKNOWN INDICATION
     Dosage: 5 MG, QD
     Route: 065
     Dates: start: 20170811

REACTIONS (8)
  - Dysstasia [Unknown]
  - Intentional product use issue [Unknown]
  - Asthenia [Unknown]
  - Foot fracture [Unknown]
  - Memory impairment [Unknown]
  - Middle ear effusion [Unknown]
  - Dyspnoea [Unknown]
  - Confusional state [Unknown]
